FAERS Safety Report 21525716 (Version 4)
Quarter: 2023Q2

REPORT INFORMATION
  Report Type: Report from Study
  Country: US (occurrence: US)
  Receive Date: 20221031
  Receipt Date: 20230526
  Transmission Date: 20230722
  Serious: No
  Sender: FDA-Public Use
  Company Number: US-ACADIA PHARMACEUTICALS INC.-ACA-2022-PIM-003450

PATIENT
  Age: 81 Year
  Sex: Male

DRUGS (2)
  1. NUPLAZID [Suspect]
     Active Substance: PIMAVANSERIN TARTRATE
     Indication: Parkinson^s disease psychosis
     Dosage: 34 MILLIGRAM, QD
     Route: 048
     Dates: end: 202305
  2. REMERON [Suspect]
     Active Substance: MIRTAZAPINE
     Dosage: UNK

REACTIONS (3)
  - Product dose omission issue [Unknown]
  - General physical health deterioration [Unknown]
  - Lethargy [Recovered/Resolved]

NARRATIVE: CASE EVENT DATE: 20230501
